FAERS Safety Report 19727503 (Version 3)
Quarter: 2022Q2

REPORT INFORMATION
  Report Type: Report from Study
  Country: JP (occurrence: JP)
  Receive Date: 20210819
  Receipt Date: 20220407
  Transmission Date: 20220721
  Serious: Yes (Hospitalization)
  Sender: FDA-Public Use
  Company Number: JP-JNJFOC-20210829343

PATIENT
  Age: 31 Year
  Sex: Male
  Weight: 31.598 kg

DRUGS (16)
  1. GUSELKUMAB [Suspect]
     Active Substance: GUSELKUMAB
     Indication: Crohn^s disease
     Dosage: MED. KIT NO. 25126, 25127, 25128
     Route: 042
     Dates: start: 20210721, end: 20210721
  2. GUSELKUMAB [Suspect]
     Active Substance: GUSELKUMAB
     Route: 048
     Dates: start: 20121225
  3. BIOFERMIN [BACILLUS SUBTILIS;ENTEROCOCCUS FAECALIS;LACTOBACILLUS ACIDO [Concomitant]
     Indication: Crohn^s disease
     Route: 048
     Dates: start: 20121225
  4. MESALAMINE [Concomitant]
     Active Substance: MESALAMINE
     Indication: Crohn^s disease
     Route: 048
     Dates: start: 20121213
  5. ESOMEPRAZOLE MAGNESIUM [Concomitant]
     Active Substance: ESOMEPRAZOLE MAGNESIUM
     Indication: Crohn^s disease
     Route: 048
     Dates: start: 20140425
  6. MOSAPRIDE CITRATE DIHYDRATE [Concomitant]
     Active Substance: MOSAPRIDE CITRATE DIHYDRATE
     Indication: Crohn^s disease
     Route: 048
     Dates: start: 20130309
  7. AZATHIOPRINE [Concomitant]
     Active Substance: AZATHIOPRINE
     Indication: Crohn^s disease
     Route: 048
     Dates: start: 20130426
  8. TRIMEBUTINE MALEATE [Concomitant]
     Active Substance: TRIMEBUTINE MALEATE
     Indication: Crohn^s disease
     Route: 048
     Dates: start: 20121214
  9. AMINO ACIDS\CARBOHYDRATES\MINERALS\SOYBEAN OIL\VITAMINS [Concomitant]
     Active Substance: AMINO ACIDS\CARBOHYDRATES\MINERALS\SOYBEAN OIL\VITAMINS
     Indication: Crohn^s disease
     Route: 048
     Dates: start: 20121229
  10. MINOCYCLINE HYDROCHLORIDE [Concomitant]
     Active Substance: MINOCYCLINE HYDROCHLORIDE
     Indication: Seborrhoeic dermatitis
     Route: 048
     Dates: start: 20210729, end: 20210805
  11. NADIFLOXACIN [Concomitant]
     Active Substance: NADIFLOXACIN
     Indication: Seborrhoeic dermatitis
     Dosage: 1 OTHER
     Route: 062
     Dates: start: 20210729, end: 20210807
  12. CLINDAMYCIN PHOSPHATE [Concomitant]
     Active Substance: CLINDAMYCIN PHOSPHATE
     Indication: Seborrhoeic dermatitis
     Dosage: 1 OTHER
     Route: 062
     Dates: start: 20210729, end: 20210807
  13. BENZOYL PEROXIDE [Concomitant]
     Active Substance: BENZOYL PEROXIDE
     Indication: Seborrhoeic dermatitis
     Dosage: 2.5 OTHER
     Route: 062
     Dates: start: 20210729, end: 20210807
  14. HEPARINOID [Concomitant]
     Indication: Seborrhoeic dermatitis
     Dosage: 0.3 OTHER
     Route: 062
     Dates: start: 20210729, end: 20210807
  15. HYDROCORTISONE BUTYRATE [Concomitant]
     Active Substance: HYDROCORTISONE BUTYRATE
     Indication: Seborrhoeic dermatitis
     Dosage: 0.1 OTHER
     Route: 062
     Dates: start: 20210729, end: 20210807
  16. KETOCONAZOLE [Concomitant]
     Active Substance: KETOCONAZOLE
     Indication: Seborrhoeic dermatitis
     Dosage: 2 OTHER
     Route: 062
     Dates: start: 20210729, end: 20210807

REACTIONS (1)
  - Angioedema [Recovered/Resolved]

NARRATIVE: CASE EVENT DATE: 20210729
